FAERS Safety Report 6560225-6 (Version None)
Quarter: 2010Q1

REPORT INFORMATION
  Report Type: 
  Country: None (occurrence: None)
  Receive Date: 20100129
  Receipt Date: 20050131
  Transmission Date: 20100710
  Serious: No
  Sender: FDA-Public Use
  Company Number: US-ALLERGAN-200500987

PATIENT
  Age: 28 Year
  Sex: Female

DRUGS (2)
  1. BOTOX [Suspect]
     Indication: HYPERHIDROSIS
     Dosage: 100UNITS, SINGLE
     Route: 023
     Dates: start: 20041216, end: 20041216
  2. DEPO-PROVERA [Concomitant]
     Indication: CONTRACEPTION
     Dosage: EVERY THREE MONTHS FOR THE PAST 6 YEARS
     Route: 023

REACTIONS (1)
  - MUSCULAR WEAKNESS [None]
